FAERS Safety Report 8632332 (Version 2)
Quarter: 2012Q4

REPORT INFORMATION
  Report Type: 
  Country: NL (occurrence: NL)
  Receive Date: 20120625
  Receipt Date: 20120906
  Transmission Date: 20130627
  Serious: Yes (Disabling, Other)
  Sender: FDA-Public Use
  Company Number: NL-ASTRAZENECA-2012SE39948

PATIENT
  Age: 739 Month
  Sex: Male
  Weight: 98 kg

DRUGS (5)
  1. CRESTOR [Suspect]
     Route: 048
     Dates: start: 200308
  2. ENALAPRIL [Suspect]
     Indication: HYPERTENSION
     Route: 048
     Dates: start: 200306, end: 20120515
  3. ENALAPRIL [Suspect]
     Indication: MYOCARDIAL INFARCTION
     Route: 048
     Dates: start: 200306, end: 20120515
  4. ASCAL [Concomitant]
     Route: 048
     Dates: start: 200306
  5. METOPROLOL [Concomitant]
     Route: 048
     Dates: start: 200306, end: 201201

REACTIONS (3)
  - Neuralgia [Recovering/Resolving]
  - Polyneuropathy chronic [Recovering/Resolving]
  - Muscle spasms [Recovering/Resolving]
